FAERS Safety Report 12540565 (Version 10)
Quarter: 2017Q2

REPORT INFORMATION
  Report Type: Report from Study
  Country: JP (occurrence: JP)
  Receive Date: 20160708
  Receipt Date: 20170425
  Transmission Date: 20170830
  Serious: Yes (Death)
  Sender: FDA-Public Use
  Company Number: JP-ROCHE-1787936

PATIENT
  Age: 74 Year
  Sex: Male
  Weight: 69.8 kg

DRUGS (6)
  1. CYCLOPHOSPHAMIDE. [Suspect]
     Active Substance: CYCLOPHOSPHAMIDE
     Indication: MARGINAL ZONE LYMPHOMA
     Dosage: DATE OF MOST RECENT DOSE OF CYCLOPHOSPHAMIDE PRIOR TO SAE ONSET: 12/JUN/2012 (1250 MG)?ON DAY2 OF CY
     Route: 042
     Dates: start: 20120224
  2. RITUXIMAB [Suspect]
     Active Substance: RITUXIMAB
     Indication: MARGINAL ZONE LYMPHOMA
     Dosage: ON DAY1 OF CYCLE 1 TO 8 (21 DAYS CYCLE)
     Route: 042
     Dates: start: 20120223, end: 20120723
  3. RITUXIMAB [Suspect]
     Active Substance: RITUXIMAB
     Dosage: MAINTENANCE DOSE?DATE OF MOST RECENT DOSE OF RITUXIMAB PRIOR TO SAE ONSET: 29/MAY/2014 (VOLUME: 633
     Route: 042
     Dates: start: 20120917
  4. PREDNISOLONE. [Suspect]
     Active Substance: PREDNISOLONE
     Indication: MARGINAL ZONE LYMPHOMA
     Dosage: ON DAY 1 TO 5 OF CYCLE 1 TO 6 (21 DAYS CYCLE)?DATE OF MOST RECENT DOSE OF PREDNISOLONE PRIOR TO SAE
     Route: 048
     Dates: start: 20120223
  5. DOXORUBICIN [Suspect]
     Active Substance: DOXORUBICIN
     Indication: MARGINAL ZONE LYMPHOMA
     Dosage: ON DAY2 OF CYCLE 1 TO 6?DATE OF MOST RECENT DOSE OF DOXORUBICIN PRIOR TO SAE ONSET: 12/JUN/2012 (84
     Route: 042
     Dates: start: 20120224
  6. VINCRISTINE [Suspect]
     Active Substance: VINCRISTINE
     Indication: MARGINAL ZONE LYMPHOMA
     Dosage: ON DAY 2 OF CYCLE 1 TO 6?DATE OF MOST RECENT DOSE OF VINCRISTINE PRIOR TO SAE ONSET: 12/JUN/2012 (2
     Route: 042
     Dates: start: 20120224

REACTIONS (1)
  - Cholangiocarcinoma [Fatal]

NARRATIVE: CASE EVENT DATE: 20160614
